FAERS Safety Report 4497562-5 (Version None)
Quarter: 2004Q4

REPORT INFORMATION
  Report Type: 
  Country: None (occurrence: None)
  Receive Date: 20041108
  Receipt Date: 20041027
  Transmission Date: 20050328
  Serious: Yes (Other)
  Sender: FDA-Public Use
  Company Number: US-JNJFOC-20041008611

PATIENT
  Sex: Female
  Weight: 45.36 kg

DRUGS (1)
  1. CONCERTA [Suspect]
     Route: 049
     Dates: start: 20010101

REACTIONS (2)
  - GROWTH RETARDATION [None]
  - PROTEIN URINE PRESENT [None]
